FAERS Safety Report 13636642 (Version 1)
Quarter: 2017Q2

REPORT INFORMATION
  Report Type: Spontaneous
  Country: US (occurrence: US)
  Receive Date: 20170531
  Receipt Date: 20170531
  Transmission Date: 20170830
  Serious: No
  Sender: FDA-Public Use
  Company Number: US-ASTELLAS-1839458

PATIENT
  Sex: Female

DRUGS (7)
  1. HYDROCODONE BITARTRATE. [Concomitant]
     Active Substance: HYDROCODONE BITARTRATE
  2. TARCEVA [Suspect]
     Active Substance: ERLOTINIB HYDROCHLORIDE
     Indication: BONE CANCER
     Route: 048
     Dates: start: 20160907
  3. NAPROXEN. [Concomitant]
     Active Substance: NAPROXEN
  4. RANITIDINE. [Concomitant]
     Active Substance: RANITIDINE
  5. TARCEVA [Suspect]
     Active Substance: ERLOTINIB HYDROCHLORIDE
     Indication: LUNG NEOPLASM MALIGNANT
     Route: 048
     Dates: start: 20160906
  6. FUROSEMIDE. [Concomitant]
     Active Substance: FUROSEMIDE
  7. XANAX [Concomitant]
     Active Substance: ALPRAZOLAM

REACTIONS (7)
  - Abdominal discomfort [Unknown]
  - Rash [Unknown]
  - Alopecia [Unknown]
  - Influenza [Unknown]
  - Viral upper respiratory tract infection [Unknown]
  - Conjunctivitis [Unknown]
  - Acne [Recovered/Resolved]
